FAERS Safety Report 13765540 (Version 5)
Quarter: 2017Q4

REPORT INFORMATION
  Report Type: Report from Study
  Country: CO (occurrence: CO)
  Receive Date: 20170718
  Receipt Date: 20171205
  Transmission Date: 20180320
  Serious: Yes (Life-Threatening, Hospitalization)
  Sender: FDA-Public Use
  Company Number: PHHY2016CO137933

PATIENT
  Age: 48 Year
  Sex: Male
  Weight: 40 kg

DRUGS (6)
  1. SANDOSTATIN LAR DEPOT [Suspect]
     Active Substance: OCTREOTIDE ACETATE
     Dosage: 30 MG, QMO
     Route: 030
     Dates: start: 20171003
  2. LEVOTHYROXINE. [Concomitant]
     Active Substance: LEVOTHYROXINE
     Indication: PRODUCT USED FOR UNKNOWN INDICATION
     Route: 065
  3. BUPRENORPHINE. [Concomitant]
     Active Substance: BUPRENORPHINE
     Indication: PRODUCT USED FOR UNKNOWN INDICATION
     Route: 065
  4. CALCITRIOL. [Concomitant]
     Active Substance: CALCITRIOL
     Indication: PRODUCT USED FOR UNKNOWN INDICATION
     Dosage: 0.25 MG, UNK
     Route: 065
  5. SANDOSTATIN LAR DEPOT [Suspect]
     Active Substance: OCTREOTIDE ACETATE
     Indication: NEUROENDOCRINE TUMOUR
     Dosage: 30 MG, QMO
     Route: 030
     Dates: start: 2015
  6. SANDOSTATIN LAR DEPOT [Suspect]
     Active Substance: OCTREOTIDE ACETATE
     Dosage: 30 MG, QMO
     Route: 030
     Dates: start: 20161201

REACTIONS (28)
  - Blood calcium decreased [Unknown]
  - Lymphadenopathy [Unknown]
  - Vertebral column mass [Unknown]
  - Abdominal pain [Unknown]
  - Metastases to stomach [Unknown]
  - Weight decreased [Unknown]
  - Neck pain [Unknown]
  - Central nervous system mass [Unknown]
  - Malignant neoplasm progression [Unknown]
  - Blood glucose abnormal [Unknown]
  - Metastases to thorax [Unknown]
  - Spinal pain [Unknown]
  - Pain [Unknown]
  - Metastases to central nervous system [Unknown]
  - Back pain [Unknown]
  - Asthenia [Unknown]
  - Speech disorder [Unknown]
  - Neoplasm [Unknown]
  - Blood count abnormal [Unknown]
  - Metastases to lung [Unknown]
  - Seizure [Unknown]
  - Traumatic lung injury [Unknown]
  - Drug ineffective [Unknown]
  - Malaise [Unknown]
  - Mass [Unknown]
  - Metastases to bone [Unknown]
  - Metastases to pharynx [Unknown]
  - Tachycardia [Unknown]

NARRATIVE: CASE EVENT DATE: 20170728
